FAERS Safety Report 6663323-1 (Version None)
Quarter: 2010Q2

REPORT INFORMATION
  Report Type: 
  Country: None (occurrence: None)
  Receive Date: 20100401
  Receipt Date: 20100317
  Transmission Date: 20101027
  Serious: No
  Sender: FDA-Public Use
  Company Number: US-B.I. PHARMACEUTICALS,INC./RIDGEFIELD-2010-BP-03108BP

PATIENT
  Age: 9 Year
  Sex: Male

DRUGS (3)
  1. CATAPRES-TTS-1 [Suspect]
     Indication: AUTISM
     Dosage: 0.3 MG
     Route: 061
     Dates: start: 20061201, end: 20070301
  2. RISPERDAL [Concomitant]
     Indication: AUTISM
  3. ADDERRALL NR [Concomitant]
     Indication: AUTISM

REACTIONS (1)
  - APPLICATION SITE REACTION [None]
